FAERS Safety Report 8146955 (Version 3)
Quarter: 2013Q3

REPORT INFORMATION
  Report Type: Report from Study
  Country: GB (occurrence: GB)
  Receive Date: 20110921
  Receipt Date: 20130909
  Transmission Date: 20140515
  Serious: Yes (Hospitalization)
  Sender: FDA-Public Use
  Company Number: GB-ABBOTT-11P-167-0855729-00

PATIENT
  Age: 46 Year
  Sex: Male
  Weight: 63 kg

DRUGS (31)
  1. HUMIRA 40 MG/ 0.8 ML PRE-FILLED SYRINGE [Suspect]
     Indication: PSORIASIS
     Route: 058
     Dates: start: 20100826, end: 20101102
  2. HUMIRA 40 MG/ 0.8 ML PRE-FILLED SYRINGE [Suspect]
     Route: 058
     Dates: start: 20110310, end: 20110527
  3. TACROLIMUS [Concomitant]
     Indication: PRODUCT USED FOR UNKNOWN INDICATION
     Dates: start: 20081126
  4. ASPIRIN [Concomitant]
     Indication: PRODUCT USED FOR UNKNOWN INDICATION
     Dates: start: 20081126
  5. CO-CODAMOL [Concomitant]
     Indication: PRODUCT USED FOR UNKNOWN INDICATION
     Dates: start: 20081126
  6. ELOCON [Concomitant]
     Indication: PRODUCT USED FOR UNKNOWN INDICATION
     Dates: start: 20081126
  7. HYDROXYZINE [Concomitant]
     Indication: PRODUCT USED FOR UNKNOWN INDICATION
     Dates: start: 20081126
  8. HYDROXYZINE [Concomitant]
     Dosage: AT NIGHT
  9. LANSOPRAZOLE [Concomitant]
     Indication: PRODUCT USED FOR UNKNOWN INDICATION
     Dates: start: 20081126
  10. NOVOMIX [Concomitant]
     Indication: PRODUCT USED FOR UNKNOWN INDICATION
     Dosage: IN THE MORNING AND TEATIME
     Dates: start: 20081126
  11. 50/50 CREAM [Concomitant]
     Indication: PRODUCT USED FOR UNKNOWN INDICATION
     Dates: start: 20081126
  12. METFORMIN [Concomitant]
     Indication: PRODUCT USED FOR UNKNOWN INDICATION
     Dates: start: 20100101
  13. HYDROCORTISONE [Concomitant]
     Indication: PRODUCT USED FOR UNKNOWN INDICATION
     Dosage: IN THE MORNING
     Dates: start: 20081126
  14. HYDROCORTISONE [Concomitant]
     Dosage: AT LUNCHTIME AND TEA
  15. ACITRETIN [Concomitant]
     Indication: PRODUCT USED FOR UNKNOWN INDICATION
     Dates: start: 20100816
  16. MYCOPHENOLATE MOFETIL [Concomitant]
     Indication: PRODUCT USED FOR UNKNOWN INDICATION
     Dates: start: 20081126
  17. INSULIN [Concomitant]
     Indication: PRODUCT USED FOR UNKNOWN INDICATION
  18. PREDNISOLONE [Concomitant]
     Indication: PRODUCT USED FOR UNKNOWN INDICATION
  19. DERMOVATE [Concomitant]
     Indication: PRODUCT USED FOR UNKNOWN INDICATION
  20. BETNOVATE RD [Concomitant]
     Indication: PRODUCT USED FOR UNKNOWN INDICATION
  21. DIPROSALIC [Concomitant]
     Indication: PRODUCT USED FOR UNKNOWN INDICATION
     Dosage: SCALP LIQUID IN THE MORNING
  22. EUMOVATE [Concomitant]
     Indication: PRODUCT USED FOR UNKNOWN INDICATION
  23. UNGUENTUM MERCK [Concomitant]
     Indication: PRODUCT USED FOR UNKNOWN INDICATION
  24. PARACETAMOL [Concomitant]
     Indication: PRODUCT USED FOR UNKNOWN INDICATION
  25. GAVISCON [Concomitant]
     Indication: PRODUCT USED FOR UNKNOWN INDICATION
  26. TRAMADOL [Concomitant]
     Indication: PRODUCT USED FOR UNKNOWN INDICATION
  27. SCC [Concomitant]
     Indication: PRODUCT USED FOR UNKNOWN INDICATION
     Dosage: AT NIGHT
  28. ALPHOSYL 2 IN 1 [Concomitant]
     Indication: PRODUCT USED FOR UNKNOWN INDICATION
  29. TRIMOVATE [Concomitant]
     Indication: PRODUCT USED FOR UNKNOWN INDICATION
  30. TRIMOVATE [Concomitant]
     Indication: PRODUCT USED FOR UNKNOWN INDICATION
  31. ORABASE [Concomitant]
     Indication: PRODUCT USED FOR UNKNOWN INDICATION

REACTIONS (4)
  - Erythrodermic psoriasis [Recovered/Resolved with Sequelae]
  - Psoriasis [Recovered/Resolved with Sequelae]
  - Infection [Unknown]
  - Psoriasis [Recovered/Resolved with Sequelae]
